FAERS Safety Report 5303646-1 (Version None)
Quarter: 2007Q2

REPORT INFORMATION
  Report Type: 
  Country: None (occurrence: None)
  Receive Date: 20070420
  Receipt Date: 20070409
  Transmission Date: 20071010
  Serious: Yes (Life-Threatening)
  Sender: FDA-Public Use
  Company Number: JP-SHR-JP-2007-012760

PATIENT
  Age: 74 Year
  Sex: Male

DRUGS (4)
  1. LASIX [Concomitant]
     Route: 048
     Dates: start: 20040921, end: 20070406
  2. ALLOPURINOL [Concomitant]
     Route: 048
     Dates: start: 20040928, end: 20070406
  3. LIPITOR                                 /NET/ [Concomitant]
     Dosage: UNK, UNK
     Route: 048
     Dates: start: 20040511, end: 20070406
  4. SOTALOL HCL [Suspect]
     Indication: ATRIAL FIBRILLATION
     Dosage: 20 MG, 2X/DAY
     Route: 048
     Dates: start: 20060629, end: 20060802

REACTIONS (1)
  - INTERSTITIAL LUNG DISEASE [None]
